FAERS Safety Report 8583674-3 (Version None)
Quarter: 2012Q3

REPORT INFORMATION
  Report Type: 
  Country: None (occurrence: None)
  Receive Date: 20120809
  Receipt Date: 20120710
  Transmission Date: 20120928
  Serious: Yes (Other)
  Sender: FDA-Public Use
  Company Number: FR-009507513-2012SP034242

PATIENT
  Sex: Female

DRUGS (1)
  1. VIRAFERONPEG [Suspect]
     Indication: PRODUCT USED FOR UNKNOWN INDICATION

REACTIONS (2)
  - INJURY ASSOCIATED WITH DEVICE [None]
  - ACCIDENTAL EXPOSURE [None]
